FAERS Safety Report 5294583-X (Version None)
Quarter: 2007Q2

REPORT INFORMATION
  Report Type: 
  Country: None (occurrence: None)
  Receive Date: 20070412
  Receipt Date: 20070402
  Transmission Date: 20071010
  Serious: Yes (Other)
  Sender: FDA-Public Use
  Company Number: 2007GB00698

PATIENT
  Age: 54 Year
  Sex: Male
  Weight: 113 kg

DRUGS (13)
  1. PROPOFOL [Suspect]
     Indication: ANAESTHESIA
     Route: 042
     Dates: start: 20070222
  2. DEXAMETHASONE [Suspect]
     Indication: ANAESTHESIA
     Route: 042
     Dates: start: 20070222
  3. KETOPROFEN [Suspect]
     Indication: PREMEDICATION
     Route: 048
     Dates: start: 20070222, end: 20070222
  4. MIDAZOLAM HCL [Suspect]
     Indication: ANAESTHESIA
     Route: 042
     Dates: start: 20070222
  5. OXYGEN [Suspect]
     Indication: ANAESTHESIA
     Dates: start: 20070222
  6. RANITIDINE [Suspect]
     Indication: PREMEDICATION
     Route: 048
     Dates: start: 20070222
  7. REMIFENTANIL [Suspect]
     Indication: ANAESTHESIA
     Route: 042
     Dates: start: 20070222
  8. TRAMADOL HCL [Suspect]
     Indication: PERIOPERATIVE ANALGESIA
     Route: 042
     Dates: start: 20070222, end: 20070222
  9. CHLORPHENIRAMINE MALEATE [Concomitant]
     Indication: ARTHROPOD BITE
     Route: 048
     Dates: start: 20070210, end: 20070212
  10. FELODIPINE [Concomitant]
     Indication: HYPERTENSION
     Route: 048
     Dates: start: 20070216
  11. IBUPROFEN [Concomitant]
     Route: 048
  12. PARACETAMOL [Concomitant]
     Route: 048
  13. MARCAINE [Concomitant]

REACTIONS (4)
  - DIARRHOEA [None]
  - HYPOTENSION [None]
  - PO2 DECREASED [None]
  - VOMITING [None]
